FAERS Safety Report 9190976 (Version 1)
Quarter: 2013Q1

REPORT INFORMATION
  Report Type: Spontaneous
  Country: DE (occurrence: DE)
  Receive Date: 20130326
  Receipt Date: 20130326
  Transmission Date: 20140127
  Serious: Yes (Death)
  Sender: FDA-Public Use
  Company Number: DE-PFIZER INC-2013092421

PATIENT
  Sex: Male
  Weight: 90 kg

DRUGS (2)
  1. SUNITINIB MALATE [Suspect]
     Dosage: 50 MG, 1X/DAY
     Route: 048
     Dates: start: 20120301, end: 20120324
  2. BRIVUDINE [Suspect]
     Dosage: 125 MG, 1X/DAY
     Route: 048
     Dates: start: 20120315, end: 20120321

REACTIONS (1)
  - Hepatitis toxic [Fatal]
